FAERS Safety Report 4288969-X (Version None)
Quarter: 2004Q1

REPORT INFORMATION
  Report Type: 
  Country: None (occurrence: None)
  Receive Date: 20040206
  Receipt Date: 20040122
  Transmission Date: 20041129
  Serious: Yes (Life-Threatening)
  Sender: FDA-Public Use
  Company Number: S04-USA-00314-01

PATIENT
  Age: 39 Year
  Sex: Male

DRUGS (5)
  1. LEXAPRO [Suspect]
     Indication: DEPRESSION
     Dosage: 10 MG QOD PO
     Route: 048
     Dates: start: 20040301, end: 20040111
  2. LEXAPRO [Suspect]
     Indication: DEPRESSION
     Dosage: 10 MG QD PO
     Route: 048
     Dates: start: 20030101, end: 20030101
  3. LEXAPRO [Suspect]
     Indication: DEPRESSION
     Dosage: 20 MG QD PO
     Route: 048
     Dates: start: 20030101, end: 20040101
  4. LEXAPRO [Suspect]
     Indication: DEPRESSION
     Dosage: 10 MG QD PO
     Route: 048
     Dates: start: 20040101, end: 20040101
  5. PRILOSEC [Concomitant]

REACTIONS (6)
  - ALCOHOL USE [None]
  - IMPAIRED DRIVING ABILITY [None]
  - LEGAL PROBLEM [None]
  - LOSS OF CONSCIOUSNESS [None]
  - ROAD TRAFFIC ACCIDENT [None]
  - VISION BLURRED [None]
